FAERS Safety Report 19956588 (Version 4)
Quarter: 2022Q1

REPORT INFORMATION
  Report Type: Report from Study
  Country: FR (occurrence: None)
  Receive Date: 20211014
  Receipt Date: 20220209
  Transmission Date: 20220423
  Serious: Yes (Disabling)
  Sender: FDA-Public Use
  Company Number: FR-ROCHE-2930988

PATIENT
  Age: 63 Year
  Sex: Female

DRUGS (6)
  1. ATEZOLIZUMAB [Suspect]
     Active Substance: ATEZOLIZUMAB
     Indication: Non-small cell lung cancer
     Route: 042
     Dates: start: 20210205, end: 20210909
  2. BEVACIZUMAB [Suspect]
     Active Substance: BEVACIZUMAB
     Indication: Non-small cell lung cancer
     Route: 042
     Dates: start: 20210226, end: 20210909
  3. PEMETREXED [Concomitant]
     Active Substance: PEMETREXED
     Indication: Non-small cell lung cancer
     Route: 042
     Dates: start: 20210205, end: 20210908
  4. PEMETREXED [Concomitant]
     Active Substance: PEMETREXED
     Route: 042
     Dates: start: 20210909, end: 20210909
  5. CISPLATIN [Concomitant]
     Active Substance: CISPLATIN
     Indication: Non-small cell lung cancer
     Route: 042
     Dates: start: 20210205, end: 20210409
  6. ELIQUIS [Concomitant]
     Active Substance: APIXABAN
     Indication: Thrombosis in device
     Route: 048
     Dates: start: 20210602

REACTIONS (1)
  - Optic atrophy [Not Recovered/Not Resolved]

NARRATIVE: CASE EVENT DATE: 20210924
